FAERS Safety Report 13684315 (Version 2)
Quarter: 2017Q3

REPORT INFORMATION
  Report Type: Report from Study
  Country: US (occurrence: US)
  Receive Date: 20170623
  Receipt Date: 20170704
  Transmission Date: 20171127
  Serious: Yes (Other)
  Sender: FDA-Public Use
  Company Number: US-AMGEN-USASL2017016863

PATIENT
  Age: 79 Year
  Sex: Female
  Weight: 52.61 kg

DRUGS (17)
  1. PROLIA [Suspect]
     Active Substance: DENOSUMAB
     Indication: COMPRESSION FRACTURE
  2. PROLIA [Suspect]
     Active Substance: DENOSUMAB
     Indication: OSTEOPOROTIC FRACTURE
  3. PROLIA [Suspect]
     Active Substance: DENOSUMAB
     Indication: RADICULOPATHY
  4. OXYGEN. [Concomitant]
     Active Substance: OXYGEN
     Dosage: UNK
  5. CEFUROXIME AXETIL. [Concomitant]
     Active Substance: CEFUROXIME AXETIL
     Dosage: 250 MG, BID
     Route: 048
  6. SYMBICORT [Concomitant]
     Active Substance: BUDESONIDE\FORMOTEROL FUMARATE DIHYDRATE
     Dosage: (160/4.5 MCG/ACT AEROSOL 2 PUFFS)BID
  7. PROLIA [Suspect]
     Active Substance: DENOSUMAB
     Indication: DIFFUSE IDIOPATHIC SKELETAL HYPEROSTOSIS
  8. OMEPRAZOLE. [Concomitant]
     Active Substance: OMEPRAZOLE
     Dosage: 20 MG, QD
     Route: 048
  9. TRAMADOL HCL [Concomitant]
     Active Substance: TRAMADOL HYDROCHLORIDE
     Dosage: 50 MG, Q6H
     Route: 048
  10. POTASSIUM CHLORIDE. [Concomitant]
     Active Substance: POTASSIUM CHLORIDE
     Dosage: QD
     Route: 048
  11. PREDNISONE. [Concomitant]
     Active Substance: PREDNISONE
     Dosage: 5 MG, QD
     Route: 048
  12. VENTOLIN [Concomitant]
     Active Substance: ALBUTEROL SULFATE
     Dosage: (2 PUFFS AS NEEDED)Q4H
  13. MONTELUKAST SODIUM. [Concomitant]
     Active Substance: MONTELUKAST SODIUM
     Dosage: 10 MG, QD
     Route: 048
  14. HYDROCODONE/ACETAMINOPHEN [Concomitant]
     Active Substance: ACETAMINOPHEN\HYDROCODONE
     Dosage: 10 MG/325 MG, Q6H
     Route: 048
  15. PROLIA [Suspect]
     Active Substance: DENOSUMAB
     Indication: SPONDYLOLISTHESIS
  16. PROLIA [Suspect]
     Active Substance: DENOSUMAB
     Indication: BONE DISORDER
     Dosage: 60 MG, Q6MO
     Route: 058
  17. PROLIA [Suspect]
     Active Substance: DENOSUMAB
     Indication: PATHOLOGICAL FRACTURE

REACTIONS (6)
  - Thoracic vertebral fracture [Unknown]
  - Hypoaesthesia [Unknown]
  - Off label use [Unknown]
  - Cough [Unknown]
  - Compression fracture [Unknown]
  - Radicular pain [Unknown]

NARRATIVE: CASE EVENT DATE: 2016
